FAERS Safety Report 7039527-5 (Version None)
Quarter: 2010Q4

REPORT INFORMATION
  Report Type: 
  Country: None (occurrence: None)
  Receive Date: 20101012
  Receipt Date: 20101001
  Transmission Date: 20110411
  Serious: Yes (Other)
  Sender: FDA-Public Use
  Company Number: US-BAXTER-2010BH024876

PATIENT
  Sex: Male
  Weight: 63 kg

DRUGS (3)
  1. GAMMAGARD LIQUID [Suspect]
     Indication: IDIOPATHIC THROMBOCYTOPENIC PURPURA
     Route: 042
     Dates: start: 20100920, end: 20100921
  2. TYLENOL [Concomitant]
     Indication: PREMEDICATION
  3. RITUXAN [Concomitant]
     Indication: IDIOPATHIC THROMBOCYTOPENIC PURPURA
     Dates: start: 20060101, end: 20060101

REACTIONS (4)
  - HOT FLUSH [None]
  - PAIN [None]
  - THROAT IRRITATION [None]
  - VOMITING [None]
